FAERS Safety Report 7059961-7 (Version None)
Quarter: 2010Q4

REPORT INFORMATION
  Report Type: 
  Country: None (occurrence: None)
  Receive Date: 20101025
  Receipt Date: 20101014
  Transmission Date: 20110411
  Serious: No
  Sender: FDA-Public Use
  Company Number: US-JNJFOC-20101004653

PATIENT
  Sex: Male
  Weight: 77.11 kg

DRUGS (10)
  1. FENTANYL [Suspect]
     Indication: SPINAL OSTEOARTHRITIS
     Dosage: NDC# 0781-7241-55)
     Route: 062
  2. FENTANYL [Suspect]
     Dosage: NDC# 0781-7244-55)
     Route: 062
  3. ALTACE [Concomitant]
     Indication: GASTRIC DISORDER
     Route: 048
  4. CRESTOR [Concomitant]
     Indication: CARDIAC DISORDER
     Route: 048
  5. CRESTOR [Concomitant]
     Indication: BLOOD PRESSURE
     Route: 048
  6. COREG [Concomitant]
     Indication: CARDIAC DISORDER
     Route: 048
  7. COREG [Concomitant]
     Indication: BLOOD PRESSURE
     Route: 048
  8. ASPIRIN [Concomitant]
     Indication: CARDIAC DISORDER
     Route: 048
  9. FISH OIL [Concomitant]
     Indication: VITAMIN SUPPLEMENTATION
     Route: 048
  10. MULTIPLE VITAMIN [Concomitant]
     Indication: VITAMIN SUPPLEMENTATION
     Route: 048

REACTIONS (3)
  - PRODUCT QUALITY ISSUE [None]
  - WITHDRAWAL SYNDROME [None]
  - WRONG TECHNIQUE IN DRUG USAGE PROCESS [None]
